FAERS Safety Report 16046362 (Version 4)
Quarter: 2019Q2

REPORT INFORMATION
  Report Type: Spontaneous
  Country: US (occurrence: US)
  Receive Date: 20190307
  Receipt Date: 20190524
  Transmission Date: 20190711
  Serious: Yes (Other)
  Sender: FDA-Public Use
  Company Number: US-ASTRAZENECA-2018SF64718

PATIENT
  Age: 22806 Day
  Sex: Female

DRUGS (14)
  1. ACETAMINOPHEN. [Concomitant]
     Active Substance: ACETAMINOPHEN
  2. CEFDINIR. [Concomitant]
     Active Substance: CEFDINIR
  3. PROPOXYPHENE. [Concomitant]
     Active Substance: PROPOXYPHENE
  4. LEVAQUIN [Concomitant]
     Active Substance: LEVOFLOXACIN
  5. LEVOTHYROXINE. [Concomitant]
     Active Substance: LEVOTHYROXINE
  6. AZITHROMYCIN ANHYDROUS. [Concomitant]
     Active Substance: AZITHROMYCIN ANHYDROUS
  7. HYDROCODONE [Concomitant]
     Active Substance: HYDROCODONE
  8. IBUPROFEN. [Concomitant]
     Active Substance: IBUPROFEN
  9. MEPERIDINE [Concomitant]
     Active Substance: MEPERIDINE
  10. CIPROFLOXACIN. [Concomitant]
     Active Substance: CIPROFLOXACIN
  11. HYDROCODONE [Concomitant]
     Active Substance: HYDROCODONE
  12. METOPROLOL. [Concomitant]
     Active Substance: METOPROLOL
  13. PRILOSEC OTC [Suspect]
     Active Substance: OMEPRAZOLE MAGNESIUM
     Indication: DYSPEPSIA
     Route: 048
     Dates: start: 2013, end: 2017
  14. SULFAMETHOXAZOLE [Concomitant]
     Active Substance: SULFAMETHOXAZOLE

REACTIONS (3)
  - Acute kidney injury [Unknown]
  - Renal injury [Unknown]
  - Chronic kidney disease [Not Recovered/Not Resolved]

NARRATIVE: CASE EVENT DATE: 20160524
